FAERS Safety Report 15284523 (Version 1)
Quarter: 2018Q3

REPORT INFORMATION
  Report Type: Spontaneous
  Country: US (occurrence: US)
  Receive Date: 20180801
  Receipt Date: 20180801
  Transmission Date: 20181010
  Serious: Yes (Hospitalization)
  Sender: FDA-Public Use
  Company Number: None

PATIENT
  Sex: Female

DRUGS (4)
  1. TALTZ [Suspect]
     Active Substance: IXEKIZUMAB
     Indication: PSORIASIS
     Dosage: EVERY 4 WEEKS
     Route: 058
     Dates: start: 20160920
  2. ADDERALL 20MG [Concomitant]
  3. HYDROCODONE/APAP 10/325 [Concomitant]
  4. CLOBETASOL 0.005% OINTMENT [Concomitant]

REACTIONS (2)
  - Drug dose omission [None]
  - Condition aggravated [None]
